FAERS Safety Report 14770356 (Version 3)
Quarter: 2018Q2

REPORT INFORMATION
  Report Type: Other
  Country: None (occurrence: BR)
  Receive Date: 20180417
  Receipt Date: 20180501
  Transmission Date: 20180711
  Serious: Yes (Other)
  Sender: FDA-Public Use
  Company Number: BR-POPULATION COUNCIL, INC.-2045880

PATIENT
  Sex: Female

DRUGS (1)
  1. JADELLE [Suspect]
     Active Substance: LEVONORGESTREL
     Indication: CONTRACEPTION
     Route: 059
     Dates: start: 20150220

REACTIONS (3)
  - Abortion spontaneous [None]
  - Pregnancy with implant contraceptive [Recovered/Resolved]
  - Drug ineffective [None]

NARRATIVE: CASE EVENT DATE: 201711
